FAERS Safety Report 8402371-8 (Version None)
Quarter: 2012Q2

REPORT INFORMATION
  Report Type: 
  Country: None (occurrence: None)
  Receive Date: 20120601
  Receipt Date: 20120514
  Transmission Date: 20120825
  Serious: Yes (Other)
  Sender: FDA-Public Use
  Company Number: US-TEVA-338367USA

PATIENT
  Sex: Female

DRUGS (2)
  1. CLARAVIS [Suspect]
     Dosage: 40 MILLIGRAM;
     Route: 048
     Dates: start: 20120404, end: 20120505
  2. CLARAVIS [Suspect]
     Dosage: 60 MILLIGRAM;
     Dates: start: 20120505

REACTIONS (4)
  - SUICIDAL IDEATION [None]
  - PARANOIA [None]
  - ANXIETY [None]
  - AGITATION [None]
